FAERS Safety Report 7994799-5 (Version None)
Quarter: 2011Q4

REPORT INFORMATION
  Report Type: 
  Country: None (occurrence: None)
  Receive Date: 20111220
  Receipt Date: 20111213
  Transmission Date: 20120403
  Serious: Yes (Other)
  Sender: FDA-Public Use
  Company Number: JP-PFIZER INC-2011304952

PATIENT
  Age: 87 Year
  Sex: Male

DRUGS (3)
  1. LYRICA [Suspect]
     Indication: PAIN
     Dosage: UNK
     Dates: start: 20110801
  2. LYRICA [Suspect]
     Dosage: 150 MG, DAILY
     Dates: start: 20111115, end: 20111124
  3. LYRICA [Suspect]
     Dosage: 150 MG, DAILY
     Route: 048
     Dates: start: 20110901

REACTIONS (3)
  - MUSCLE TWITCHING [None]
  - SEIZURE LIKE PHENOMENA [None]
  - TREMOR [None]
